FAERS Safety Report 5766145-9 (Version None)
Quarter: 2008Q2

REPORT INFORMATION
  Report Type: 
  Country: None (occurrence: None)
  Receive Date: 20080611
  Receipt Date: 20080530
  Transmission Date: 20081010
  Serious: Yes (Other)
  Sender: FDA-Public Use
  Company Number: NZ-PFIZER INC-2008047580

PATIENT
  Age: 50 Year
  Sex: Female

DRUGS (4)
  1. CHANTIX [Suspect]
  2. OMEGA 3 [Suspect]
  3. OMEGA 3 [Suspect]
  4. ANTIHYPERTENSIVES [Concomitant]

REACTIONS (2)
  - ARTHRITIS [None]
  - VOMITING PROJECTILE [None]
